FAERS Safety Report 26044054 (Version 2)
Quarter: 2025Q4

REPORT INFORMATION
  Report Type: Report from Study
  Country: IN (occurrence: IN)
  Receive Date: 20251114
  Receipt Date: 20251114
  Transmission Date: 20260117
  Serious: Yes (Death, Hospitalization)
  Sender: MERCK SHARP & DOHME LLC
  Company Number: IN-009507513-2346715

PATIENT
  Age: 67 Year
  Sex: Male

DRUGS (1)
  1. KEYTRUDA [Suspect]
     Active Substance: PEMBROLIZUMAB
     Indication: Non-small cell lung cancer
     Route: 065
     Dates: start: 20250722, end: 20251018

REACTIONS (2)
  - Malignant neoplasm progression [Fatal]
  - Drug ineffective [Fatal]

NARRATIVE: CASE EVENT DATE: 20250101
